FAERS Safety Report 6376836-7 (Version None)
Quarter: 2009Q3

REPORT INFORMATION
  Report Type: 
  Country: None (occurrence: None)
  Receive Date: 20090924
  Receipt Date: 20090924
  Transmission Date: 20100115
  Serious: No
  Sender: FDA-Public Use
  Company Number: None

PATIENT
  Sex: Female

DRUGS (1)
  1. SINGULAIR [Suspect]
     Indication: BRONCHIAL HYPERREACTIVITY
     Dosage: 4 MG DAILY ORAL 047
     Route: 048
     Dates: start: 20090604, end: 20090815

REACTIONS (3)
  - HEADACHE [None]
  - MOOD SWINGS [None]
  - NIGHTMARE [None]
